FAERS Safety Report 11080873 (Version 1)
Quarter: 2015Q2

REPORT INFORMATION
  Report Type: Spontaneous
  Country: US (occurrence: US)
  Receive Date: 20150501
  Receipt Date: 20150501
  Transmission Date: 20150821
  Serious: No
  Sender: FDA-Public Use
  Company Number: US-ELI_LILLY_AND_COMPANY-US201504000986

PATIENT
  Sex: Female

DRUGS (3)
  1. CECLOR [Suspect]
     Active Substance: CEFACLOR
     Indication: BACTERIAL INFECTION
     Dosage: 500 MG, UNKNOWN
     Route: 065
  2. CEFACLOR. [Suspect]
     Active Substance: CEFACLOR
     Indication: TOOTH INFECTION
     Dosage: UNK, UNKNOWN
     Route: 065
     Dates: start: 20150401
  3. CECLOR [Suspect]
     Active Substance: CEFACLOR
     Dosage: 250 MG, UNKNOWN
     Route: 065

REACTIONS (3)
  - Abdominal distension [Unknown]
  - Gastric disorder [Unknown]
  - Abdominal pain upper [Unknown]
